FAERS Safety Report 5298391-5 (Version None)
Quarter: 2007Q2

REPORT INFORMATION
  Report Type: 
  Country: None (occurrence: None)
  Receive Date: 20070416
  Receipt Date: 20070404
  Transmission Date: 20071010
  Serious: Yes (Other)
  Sender: FDA-Public Use
  Company Number: US-PFIZER INC-2007027742

PATIENT
  Sex: Female
  Weight: 63.5 kg

DRUGS (3)
  1. DIFLUCAN [Suspect]
     Dosage: FREQ:ONCE A MONTH
  2. ZOVIA 1/35E-21 [Suspect]
  3. PROGESTOGENS AND ESTROGENS IN COMBINATION [Suspect]

REACTIONS (1)
  - HAEMORRHAGE [None]
